FAERS Safety Report 6339279-8 (Version None)
Quarter: 2009Q3

REPORT INFORMATION
  Report Type: 
  Country: None (occurrence: None)
  Receive Date: 20090903
  Receipt Date: 20090902
  Transmission Date: 20100115
  Serious: Yes (Death)
  Sender: FDA-Public Use
  Company Number: A0805175A

PATIENT
  Age: 51 Year
  Sex: Male

DRUGS (2)
  1. VENTOLIN [Suspect]
     Indication: BRONCHOSPASM
     Dosage: 1SPR AS REQUIRED
     Route: 055
     Dates: start: 20080801
  2. CONCURRENT MEDICATIONS [Concomitant]

REACTIONS (3)
  - BLOOD GLUCOSE DECREASED [None]
  - DEATH [None]
  - STARVATION [None]
